FAERS Safety Report 5982099-4 (Version None)
Quarter: 2008Q4

REPORT INFORMATION
  Report Type: 
  Country: None (occurrence: None)
  Receive Date: 20081202
  Receipt Date: 20081117
  Transmission Date: 20090506
  Serious: Yes (Death, Other)
  Sender: FDA-Public Use
  Company Number: 2008S1020675

PATIENT
  Age: 30 Year
  Sex: Female

DRUGS (1)
  1. INDOMETHACIN [Suspect]
     Indication: CHRONIC PAROXYSMAL HEMICRANIA
     Dosage: ORAL
     Route: 048

REACTIONS (9)
  - CLUBBING [None]
  - HEPATOMEGALY [None]
  - NAIL DISCOLOURATION [None]
  - PAIN [None]
  - PAPILLOEDEMA [None]
  - PARAESTHESIA [None]
  - PIGMENTATION DISORDER [None]
  - POLYNEUROPATHY [None]
  - VISUAL IMPAIRMENT [None]
